FAERS Safety Report 17968047 (Version 1)
Quarter: 2020Q2

REPORT INFORMATION
  Report Type: Spontaneous
  Country: US (occurrence: US)
  Receive Date: 20200630
  Receipt Date: 20200630
  Transmission Date: 20200714
  Serious: Yes (Hospitalization, Disabling, Other)
  Sender: FDA-Public Use
  Company Number: None

PATIENT
  Sex: Female
  Weight: 83.91 kg

DRUGS (4)
  1. LYRICA [Concomitant]
     Active Substance: PREGABALIN
  2. WELLBUTRIN [Concomitant]
     Active Substance: BUPROPION HYDROCHLORIDE
  3. MORPHINE [Suspect]
     Active Substance: MORPHINE
     Indication: PAIN
     Dosage: 4 CONTINUOUS SPINAL, INJECTED INTO SPINAL AREA
     Dates: start: 20130917, end: 20191011
  4. THYROXINE [Concomitant]
     Active Substance: LEVOTHYROXINE

REACTIONS (6)
  - Victim of abuse [None]
  - Surgery [None]
  - Anxiety [None]
  - Economic problem [None]
  - Victim of crime [None]
  - Drug dependence [None]

NARRATIVE: CASE EVENT DATE: 20190809
